FAERS Safety Report 17003358 (Version 1)
Quarter: 2019Q4

REPORT INFORMATION
  Report Type: Spontaneous
  Country: FR (occurrence: FR)
  Receive Date: 20191107
  Receipt Date: 20191107
  Transmission Date: 20200122
  Serious: Yes (Hospitalization)
  Sender: FDA-Public Use
  Company Number: FR-TEVA-2019-FR-1131704

PATIENT
  Age: 46 Year
  Sex: Female
  Weight: 72 kg

DRUGS (2)
  1. COTRIMOXAZOLE [Suspect]
     Active Substance: SULFAMETHOXAZOLE\TRIMETHOPRIM
     Indication: INFECTION
     Route: 048
     Dates: start: 20190718, end: 20190725
  2. CEFIXIME BIOGARAN [Suspect]
     Active Substance: CEFIXIME
     Indication: INFECTION
     Route: 048
     Dates: start: 20190713, end: 20190717

REACTIONS (1)
  - Clostridium difficile colitis [Recovering/Resolving]

NARRATIVE: CASE EVENT DATE: 201909
